FAERS Safety Report 24337522 (Version 1)
Quarter: 2024Q3

REPORT INFORMATION
  Report Type: Spontaneous
  Country: JP (occurrence: JP)
  Receive Date: 20240919
  Receipt Date: 20240919
  Transmission Date: 20241016
  Serious: No
  Sender: ROCHE
  Company Number: JP-CHUGAI-2023041288

PATIENT
  Age: 7 Year
  Sex: Female

DRUGS (4)
  1. TAMIFLU [Suspect]
     Active Substance: OSELTAMIVIR PHOSPHATE
     Indication: Product used for unknown indication
     Dosage: UNK
     Route: 065
     Dates: start: 20231116
  2. BIO-THREE [Concomitant]
     Active Substance: HERBALS
     Dosage: UNK
     Dates: start: 20231116
  3. CARBOCYSTEINE [Concomitant]
     Active Substance: CARBOCYSTEINE
     Dosage: UNK
     Dates: start: 20231116
  4. MUCOSAL [Concomitant]
     Dosage: UNK
     Dates: start: 20231116

REACTIONS (3)
  - Erythema [Unknown]
  - Vomiting [Unknown]
  - Faeces soft [Unknown]

NARRATIVE: CASE EVENT DATE: 20231116
